FAERS Safety Report 5136146-2 (Version None)
Quarter: 2006Q4

REPORT INFORMATION
  Report Type: 
  Country: None (occurrence: None)
  Receive Date: 20061027
  Receipt Date: 20061017
  Transmission Date: 20070319
  Serious: Yes (Death, Hospitalization)
  Sender: FDA-Public Use
  Company Number: FR-BRISTOL-MYERS SQUIBB COMPANY-13554985

PATIENT
  Age: 73 Year
  Sex: Male

DRUGS (3)
  1. GLUCOPHAGE [Suspect]
     Indication: DIABETES MELLITUS
     Dosage: THERAPY DATES: 30/JUN/06 TO 19/AUG/06; 22/AUG/06 TO 29/AUG/06.
     Route: 048
     Dates: start: 20060630, end: 20060829
  2. CAPTEA [Suspect]
     Dates: end: 20060829
  3. NEXEN [Suspect]
     Dates: start: 20060630, end: 20060829

REACTIONS (3)
  - HEPATITIS ACUTE [None]
  - JAUNDICE [None]
  - RENAL FAILURE ACUTE [None]
